FAERS Safety Report 7768766-0 (Version None)
Quarter: 2011Q3

REPORT INFORMATION
  Report Type: 
  Country: None (occurrence: None)
  Receive Date: 20110922
  Receipt Date: 20110214
  Transmission Date: 20111222
  Serious: No
  Sender: FDA-Public Use
  Company Number: US-ASTRAZENECA-2011SE08576

PATIENT
  Age: 33 Year
  Sex: Male

DRUGS (3)
  1. SEROQUEL [Suspect]
     Indication: BIPOLAR DISORDER
     Route: 048
     Dates: start: 20100901
  2. KLONOPIN [Concomitant]
  3. ELAVIL [Concomitant]

REACTIONS (4)
  - ABDOMINAL DISCOMFORT [None]
  - WEIGHT INCREASED [None]
  - CONFUSIONAL STATE [None]
  - OROPHARYNGEAL PAIN [None]
